FAERS Safety Report 21741046 (Version 1)
Quarter: 2022Q4

REPORT INFORMATION
  Report Type: Spontaneous
  Country: US (occurrence: US)
  Receive Date: 20221216
  Receipt Date: 20221216
  Transmission Date: 20230113
  Serious: No
  Sender: FDA-Public Use
  Company Number: US-AVEO ONCOLOGY-2022-AVEO-US000568

PATIENT

DRUGS (4)
  1. FOTIVDA [Suspect]
     Active Substance: TIVOZANIB HYDROCHLORIDE
     Indication: Renal cell carcinoma
     Dosage: 1.34 MG, DAILY FOR 21 DAYS WITH 7 DAYS OFF (28-DAY CYCLE)
     Route: 048
     Dates: start: 20221118, end: 20221130
  2. MORPHINE [Concomitant]
     Active Substance: MORPHINE
     Indication: Cough
  3. IRON [Concomitant]
     Active Substance: IRON
     Route: 041
  4. SENOKOT [Concomitant]
     Active Substance: SENNOSIDES
     Indication: Constipation

REACTIONS (2)
  - Hypertension [Unknown]
  - Blood glucose decreased [Unknown]

NARRATIVE: CASE EVENT DATE: 20221130
